FAERS Safety Report 9000743 (Version 2)
Quarter: 2013Q1

REPORT INFORMATION
  Report Type: Spontaneous
  Country: US (occurrence: US)
  Receive Date: 20130107
  Receipt Date: 20130306
  Transmission Date: 20140127
  Serious: Yes (Death)
  Sender: FDA-Public Use
  Company Number: PHEH2013US000617

PATIENT
  Sex: Male
  Weight: 107 kg

DRUGS (1)
  1. NEORAL [Suspect]
     Dosage: 25 MG, BID
     Route: 048
     Dates: start: 20110508, end: 20121016

REACTIONS (1)
  - Death [Fatal]
